FAERS Safety Report 25109483 (Version 2)
Quarter: 2025Q2

REPORT INFORMATION
  Report Type: Spontaneous
  Country: US (occurrence: US)
  Receive Date: 20250323
  Receipt Date: 20250409
  Transmission Date: 20250716
  Serious: No
  Sender: JOHNSON AND JOHNSON
  Company Number: US-VIIV HEALTHCARE-US2025022927

PATIENT
  Age: 53 Year
  Sex: Male

DRUGS (5)
  1. RILPIVIRINE [Suspect]
     Active Substance: RILPIVIRINE
     Indication: HIV infection
     Dosage: UNK UNK, MO, ADMINISTER ONCE A MONTH THEN EVERY OTHER MONTH
     Route: 065
     Dates: start: 202409
  2. RILPIVIRINE [Suspect]
     Active Substance: RILPIVIRINE
     Dosage: UNK UNK, MO, ADMINISTER ONCE A MONTH THEN EVERY OTHER MONTH
     Route: 065
     Dates: start: 202409, end: 20241209
  3. CABOTEGRAVIR [Suspect]
     Active Substance: CABOTEGRAVIR
     Indication: HIV infection
     Dosage: UNK UNK, MO, ADMINISTER ONCE A MONTH THEN EVERY OTHER MONTH
     Route: 065
     Dates: start: 202409
  4. CABOTEGRAVIR [Suspect]
     Active Substance: CABOTEGRAVIR
     Dosage: UNK UNK, MO, ADMINISTER ONCE A MONTH THEN EVERY OTHER MONTH
     Route: 065
     Dates: start: 202409, end: 20241209
  5. CRESTOR [Concomitant]
     Active Substance: ROSUVASTATIN CALCIUM
     Indication: Blood cholesterol abnormal

REACTIONS (3)
  - Injection site swelling [Recovered/Resolved]
  - Pyrexia [Recovered/Resolved]
  - Infection [Unknown]

NARRATIVE: CASE EVENT DATE: 20240901
